FAERS Safety Report 11740998 (Version 1)
Quarter: 2015Q4

REPORT INFORMATION
  Report Type: Spontaneous
  Country: US (occurrence: US)
  Receive Date: 20151115
  Receipt Date: 20151115
  Transmission Date: 20160304
  Serious: No
  Sender: FDA-Public Use
  Company Number: US-009507513-1511USA005190

PATIENT
  Age: 75 Year
  Sex: Female

DRUGS (1)
  1. BELSOMRA [Suspect]
     Active Substance: SUVOREXANT
     Indication: INSOMNIA
     Dosage: 10 MG, ONCE IN EVENING
     Route: 048
     Dates: start: 20151105

REACTIONS (5)
  - Dry throat [Unknown]
  - Nightmare [Unknown]
  - Chest pain [Unknown]
  - Drug ineffective [Unknown]
  - Dyspnoea [Unknown]

NARRATIVE: CASE EVENT DATE: 20151105
